FAERS Safety Report 8464948-3 (Version None)
Quarter: 2012Q2

REPORT INFORMATION
  Report Type: 
  Country: None (occurrence: None)
  Receive Date: 20120626
  Receipt Date: 20120620
  Transmission Date: 20120825
  Serious: No
  Sender: FDA-Public Use
  Company Number: US-PFIZER INC-2012149752

PATIENT
  Sex: Female

DRUGS (2)
  1. AMLODIPINE BESYLATE AND ATORVASTATIN CALCIUM [Suspect]
     Dosage: UNK
     Dates: start: 20120619
  2. CADUET [Suspect]
     Dosage: 5/20 MG
     Dates: end: 20120620

REACTIONS (1)
  - CIRCUMSTANCE OR INFORMATION CAPABLE OF LEADING TO MEDICATION ERROR [None]
